FAERS Safety Report 21623290 (Version 2)
Quarter: 2022Q4

REPORT INFORMATION
  Report Type: Report from Study
  Country: US (occurrence: US)
  Receive Date: 20221121
  Receipt Date: 20221213
  Transmission Date: 20230112
  Serious: No
  Sender: FDA-Public Use
  Company Number: US-ABBVIE-4171539

PATIENT
  Sex: Female

DRUGS (3)
  1. HUMIRA [Suspect]
     Active Substance: ADALIMUMAB
     Indication: Crohn^s disease
     Dosage: CF
     Route: 058
     Dates: start: 20220920
  2. HUMIRA [Suspect]
     Active Substance: ADALIMUMAB
     Indication: Colitis ulcerative
     Dosage: CITRATE FREE?STRENGTH: 40MG
     Route: 058
     Dates: start: 20220920
  3. Moderna [Concomitant]
     Indication: COVID-19 immunisation
     Dosage: FREQUENCY 1-1-ONCE
     Route: 030

REACTIONS (16)
  - Dry skin [Unknown]
  - Arthralgia [Unknown]
  - Chapped lips [Unknown]
  - Headache [Unknown]
  - Nasopharyngitis [Unknown]
  - Fatigue [Unknown]
  - Cough [Unknown]
  - Pyrexia [Unknown]
  - Influenza [Unknown]
  - Asthenia [Unknown]
  - Nausea [Not Recovered/Not Resolved]
  - Myalgia [Unknown]
  - Respiratory tract infection [Unknown]
  - Drug ineffective [Not Recovered/Not Resolved]
  - Drug specific antibody present [Unknown]
  - Feeling abnormal [Unknown]

NARRATIVE: CASE EVENT DATE: 20220101
